FAERS Safety Report 16812302 (Version 2)
Quarter: 2019Q3

REPORT INFORMATION
  Report Type: Spontaneous
  Country: US (occurrence: US)
  Receive Date: 20190916
  Receipt Date: 20190927
  Transmission Date: 20191005
  Serious: Yes (Other)
  Sender: FDA-Public Use
  Company Number: US-COOPERSURGICAL, INC.-US-2019CPS002773

PATIENT
  Age: 23 Year
  Sex: Female
  Weight: 53.1 kg

DRUGS (1)
  1. PARAGARD T 380A [Suspect]
     Active Substance: COPPER
     Indication: CONTRACEPTION
     Dosage: UNK
     Route: 015
     Dates: start: 20170331, end: 20190825

REACTIONS (5)
  - Device breakage [Recovered/Resolved]
  - Muscle spasms [Recovered/Resolved]
  - Device material issue [Unknown]
  - Complication of device removal [Recovered/Resolved]
  - Vaginal haemorrhage [Recovered/Resolved]

NARRATIVE: CASE EVENT DATE: 2019
